FAERS Safety Report 5999742-6 (Version None)
Quarter: 2008Q4

REPORT INFORMATION
  Report Type: 
  Country: None (occurrence: None)
  Receive Date: 20081211
  Receipt Date: 20081211
  Transmission Date: 20090506
  Serious: Yes (Life-Threatening)
  Sender: FDA-Public Use
  Company Number: None

PATIENT

DRUGS (2)
  1. PROAIR HFA [Suspect]
     Indication: ASTHMA
     Dosage: 90 MCG AS NEEDED INHALATION
     Route: 055
     Dates: start: 20081001
  2. PROAIR HFA [Suspect]
     Indication: ASTHMA
     Dosage: 90 MCG AS NEEDED INHALATION
     Route: 055
     Dates: start: 20081101

REACTIONS (2)
  - DRUG DELIVERY SYSTEM MALFUNCTION [None]
  - PRODUCT QUALITY ISSUE [None]
